FAERS Safety Report 4916488-3 (Version None)
Quarter: 2006Q1

REPORT INFORMATION
  Report Type: 
  Country: None (occurrence: None)
  Receive Date: 20060220
  Receipt Date: 20060111
  Transmission Date: 20060701
  Serious: Yes (Hospitalization)
  Sender: FDA-Public Use
  Company Number: JP-SOLVAY-00306000186

PATIENT
  Age: 0 Day
  Sex: Female
  Weight: 3.35 kg

DRUGS (4)
  1. LUVOX [Suspect]
     Indication: DRUG EXPOSURE DURING PREGNANCY
     Dosage: DAILY DOSE: 150 MILLIGRAM(S)
     Route: 064
     Dates: end: 20051125
  2. AMOXAN [Concomitant]
     Indication: DRUG EXPOSURE DURING PREGNANCY
     Dosage: DAILY DOSE: 150 MILLIGRAM(S)
     Route: 064
     Dates: end: 20051125
  3. SOLANAX [Concomitant]
     Indication: DRUG EXPOSURE DURING PREGNANCY
     Dosage: DAILY DOSE: 1.2 MILLIGRAM(S)
     Route: 064
     Dates: end: 20051125
  4. ALDOMET [Concomitant]
     Indication: DRUG EXPOSURE DURING PREGNANCY
     Dosage: DAILY DOSE: 750 MILLIGRAM(S)
     Route: 064
     Dates: start: 20051124, end: 20051125

REACTIONS (5)
  - AGITATION NEONATAL [None]
  - ANXIETY [None]
  - DRUG WITHDRAWAL SYNDROME NEONATAL [None]
  - TREMOR NEONATAL [None]
  - VOMITING NEONATAL [None]
